FAERS Safety Report 14799226 (Version 6)
Quarter: 2018Q2

REPORT INFORMATION
  Report Type: Report from Study
  Country: FR (occurrence: FR)
  Receive Date: 20180424
  Receipt Date: 20180627
  Transmission Date: 20180711
  Serious: Yes (Hospitalization)
  Sender: FDA-Public Use
  Company Number: FR-ROCHE-2106772

PATIENT
  Age: 59 Year
  Sex: Male
  Weight: 80 kg

DRUGS (13)
  1. EDUCTYL [Concomitant]
     Active Substance: POTASSIUM BITARTRATE\SODIUM BICARBONATE
     Indication: CONSTIPATION
     Dosage: 1 OTHER, SUPPOSITORY
     Route: 065
     Dates: start: 20161110
  2. EFFERALGAN CODEINE [Concomitant]
     Active Substance: ACETAMINOPHEN\CODEINE PHOSPHATE
     Indication: HEADACHE
     Route: 065
     Dates: start: 20130522
  3. PARACETAMOL [Concomitant]
     Active Substance: ACETAMINOPHEN
     Indication: BRONCHITIS
     Dosage: SUBSEQUENCT DOSES RECEIVED ON 18/OCT/2012, 25/MAR/2013, 08/APR/2013, 05/SEP/2013, 19/SEP/2013, 24/FE
     Route: 065
     Dates: start: 20121004
  4. OMEPRAZOLE. [Concomitant]
     Active Substance: OMEPRAZOLE
     Indication: DECREASED APPETITE
     Route: 065
     Dates: start: 20170602
  5. OMEPRAZOLE. [Concomitant]
     Active Substance: OMEPRAZOLE
     Route: 065
     Dates: start: 20170511, end: 20170601
  6. SPAGULAX [Concomitant]
     Active Substance: PLANTAGO OVATA SEED
     Indication: CONSTIPATION
     Dosage: 2 OTHER, SACHET
     Route: 065
     Dates: start: 20161110
  7. CETIRIZINE [Concomitant]
     Active Substance: CETIRIZINE HYDROCHLORIDE
     Dosage: SUBSEQUENCT DOSES RECEIVED ON 04/JUL/2016, 05/DEC/2016, 09/NOV/2017, 01/JUN/2017
     Route: 065
     Dates: start: 20160623
  8. LAROXYL [Concomitant]
     Active Substance: AMITRIPTYLINE HYDROCHLORIDE
     Indication: PAIN IN EXTREMITY
     Route: 065
     Dates: start: 20121227
  9. VESICARE [Concomitant]
     Active Substance: SOLIFENACIN SUCCINATE
     Indication: INCONTINENCE
     Route: 065
     Dates: start: 20170501
  10. METHYLPREDNISOLONE. [Concomitant]
     Active Substance: METHYLPREDNISOLONE
     Dosage: SUBSEQUENCT DOSES RECEIVED ON 18/OCT/2012, 25/MAR/2013, 08/APR/2013, 05/SEP/2013, 19/SEP/2013, 24/FE
     Route: 065
     Dates: start: 20121004
  11. POLARAMINE [Concomitant]
     Active Substance: DEXCHLORPHENIRAMINE MALEATE
     Dosage: SUBSEQUENCT DOSES RECEIVED ON 18/OCT/2012, 25/MAR/2013, 08/APR/2013, 05/SEP/2013, 19/SEP/2013, 24/FE
     Route: 065
     Dates: start: 20121004
  12. OCRELIZUMAB. [Suspect]
     Active Substance: OCRELIZUMAB
     Indication: PRIMARY PROGRESSIVE MULTIPLE SCLEROSIS
     Dosage: TWO INTRAVENOUS (IV) INFUSIONS OF BLINDED OCRELIZUMAB SEPARATED BY 14 DAYS IN EACH TREATMENT CYCLE O
     Route: 042
     Dates: start: 20121004, end: 20160103
  13. OCRELIZUMAB. [Suspect]
     Active Substance: OCRELIZUMAB
     Indication: PRIMARY PROGRESSIVE MULTIPLE SCLEROSIS
     Dosage: ADMINISTERED 300 MG ON DAY 1 AND 15 OF FIRST 24 WEEK CYCLES AND THEN SINGLE INFUSION OF 600 MG FOR E
     Route: 042
     Dates: start: 20160104

REACTIONS (2)
  - Urinary tract infection [Recovered/Resolved]
  - Pyrexia [Recovered/Resolved]

NARRATIVE: CASE EVENT DATE: 20180226
